FAERS Safety Report 9472597 (Version 2)
Quarter: 2013Q3

REPORT INFORMATION
  Report Type: Report from Study
  Country: AU (occurrence: AU)
  Receive Date: 20130823
  Receipt Date: 20130906
  Transmission Date: 20140515
  Serious: Yes (Death)
  Sender: FDA-Public Use
  Company Number: PHHY2013AU091217

PATIENT
  Age: 45 Year
  Sex: Female

DRUGS (1)
  1. CLOZARIL [Suspect]
     Dosage: 500 MG, UNK
     Dates: start: 20130125

REACTIONS (1)
  - Death [Fatal]
